FAERS Safety Report 7905945-3 (Version None)
Quarter: 2011Q4

REPORT INFORMATION
  Report Type: 
  Country: None (occurrence: None)
  Receive Date: 20111110
  Receipt Date: 20111102
  Transmission Date: 20120403
  Serious: Yes (Hospitalization)
  Sender: FDA-Public Use
  Company Number: FR-UCBSA-041593

PATIENT
  Age: 74 Year
  Sex: Female
  Weight: 78 kg

DRUGS (8)
  1. ACETAMINOPHEN [Concomitant]
     Dosage: ON REQUEST
  2. PANTOPRAZOLE SODIUM [Concomitant]
  3. CIMZIA [Suspect]
     Indication: RHEUMATOID ARTHRITIS
     Route: 058
     Dates: start: 20110101, end: 20110901
  4. CIMZIA [Suspect]
     Dosage: 400 MG AT DAY1,DAY14 AND DAY28
     Route: 058
     Dates: start: 20110707, end: 20110101
  5. CONTRAMAL LP [Suspect]
     Dates: end: 20110922
  6. PREDNISONE [Concomitant]
     Dosage: DOSE STRENGTH 5 MG
  7. VOLTAREN [Concomitant]
     Dosage: 1% 2 DOSES DAILY
     Dates: end: 20110914
  8. VOLTAREN [Concomitant]
     Dates: end: 20110914

REACTIONS (8)
  - LEUKOCYTOCLASTIC VASCULITIS [None]
  - MALAISE [None]
  - PAIN IN EXTREMITY [None]
  - ARTHRALGIA [None]
  - NAUSEA [None]
  - VASCULITIS NECROTISING [None]
  - PURPURA [None]
  - PHLEBITIS SUPERFICIAL [None]
